FAERS Safety Report 23058747 (Version 1)
Quarter: 2023Q4

REPORT INFORMATION
  Report Type: Spontaneous
  Country: US (occurrence: US)
  Receive Date: 20231012
  Receipt Date: 20231012
  Transmission Date: 20240109
  Serious: Yes (Other)
  Sender: FDA-Public Use
  Company Number: US-ABBVIE-5446794

PATIENT
  Sex: Female

DRUGS (1)
  1. IMBRUVICA [Suspect]
     Active Substance: IBRUTINIB
     Indication: Product used for unknown indication
     Dosage: TAKE 3 TABLETS BY?MOUTH ONCE DAILY
     Route: 048
     Dates: end: 20221212

REACTIONS (3)
  - Pyoderma gangrenosum [Unknown]
  - Skin ulcer [Unknown]
  - Limb injury [Unknown]
